FAERS Safety Report 11126281 (Version 2)
Quarter: 2015Q2

REPORT INFORMATION
  Report Type: Spontaneous
  Country: US (occurrence: US)
  Receive Date: 20150520
  Receipt Date: 20150521
  Transmission Date: 20150821
  Serious: No
  Sender: FDA-Public Use
  Company Number: US-009507513-1505USA008976

PATIENT
  Sex: Female

DRUGS (1)
  1. EMEND [Suspect]
     Active Substance: APREPITANT
     Indication: BREAST CANCER
     Dosage: 150 MG, ONCE
     Route: 042

REACTIONS (3)
  - Dyspnoea [Unknown]
  - Tachycardia [Unknown]
  - Drug administration error [Unknown]
